FAERS Safety Report 19879766 (Version 1)
Quarter: 2021Q3

REPORT INFORMATION
  Report Type: Spontaneous
  Country: US (occurrence: US)
  Receive Date: 20210924
  Receipt Date: 20210924
  Transmission Date: 20211014
  Serious: No
  Sender: FDA-Public Use
  Company Number: US-LUPIN PHARMACEUTICALS INC.-2021-17900

PATIENT
  Age: 51 Year
  Sex: Female

DRUGS (2)
  1. DOXYCYCLINE. [Suspect]
     Active Substance: DOXYCYCLINE
     Indication: ACTINOMYCOSIS
     Dosage: UNK
     Route: 042
  2. DOXYCYCLINE. [Suspect]
     Active Substance: DOXYCYCLINE
     Indication: BREAST ABSCESS
     Dosage: 100 MILLIGRAM, BID
     Route: 048

REACTIONS (1)
  - Tremor [Unknown]
